FAERS Safety Report 5045882-8 (Version None)
Quarter: 2006Q2

REPORT INFORMATION
  Report Type: 
  Country: None (occurrence: None)
  Receive Date: 20060601
  Receipt Date: 20060315
  Transmission Date: 20061013
  Serious: No
  Sender: FDA-Public Use
  Company Number: 2006-BP-00736BP

PATIENT
  Age: 63 Year
  Sex: Female
  Weight: 80.9 kg

DRUGS (11)
  1. SPIRIVA [Suspect]
     Indication: CHRONIC OBSTRUCTIVE PULMONARY DISEASE
     Dosage: 18 MCG (18 MCG, 1 IN 1 D), IH
     Route: 055
     Dates: start: 20051101
  2. SPIRIVA [Suspect]
     Indication: EMPHYSEMA
     Dosage: 18 MCG (18 MCG, 1 IN 1 D), IH
     Route: 055
     Dates: start: 20051101
  3. ALTACE [Concomitant]
  4. CITALOPRAM HYDROBROMIDE [Concomitant]
  5. ZYPREXA [Concomitant]
  6. ADVAIR DISC [Concomitant]
  7. ARTHROTEC (ARTHROTEC /01182401/) [Concomitant]
  8. ZOCOR [Concomitant]
  9. ZYRTEC-D 12 HOUR [Concomitant]
  10. FOSAMAX [Concomitant]
  11. FENTANYL TRANSDERMAL PATCH [Concomitant]

REACTIONS (2)
  - AGEUSIA [None]
  - DRUG INEFFECTIVE [None]
